FAERS Safety Report 17223177 (Version 1)
Quarter: 2020Q1

REPORT INFORMATION
  Report Type: Spontaneous
  Country: US (occurrence: US)
  Receive Date: 20200102
  Receipt Date: 20200102
  Transmission Date: 20200409
  Serious: Yes (Other)
  Sender: FDA-Public Use
  Company Number: US-009507513-2001USA000052

PATIENT
  Age: 70 Year
  Sex: Female

DRUGS (3)
  1. CARBOPLATIN. [Concomitant]
     Active Substance: CARBOPLATIN
     Indication: LUNG ADENOCARCINOMA
     Dosage: UNK, Q3W
     Route: 042
  2. PEMETREXED DISODIUM [Concomitant]
     Active Substance: PEMETREXED DISODIUM
     Indication: LUNG ADENOCARCINOMA
     Dosage: UNK, Q3W
     Route: 042
  3. KEYTRUDA [Suspect]
     Active Substance: PEMBROLIZUMAB
     Indication: LUNG ADENOCARCINOMA
     Dosage: UNK, Q3W
     Route: 042

REACTIONS (2)
  - Immune-mediated pneumonitis [Unknown]
  - Immune-mediated nephritis [Unknown]
